FAERS Safety Report 13002564 (Version 2)
Quarter: 2016Q4

REPORT INFORMATION
  Report Type: Spontaneous
  Country: JP (occurrence: JP)
  Receive Date: 20161206
  Receipt Date: 20161227
  Transmission Date: 20170207
  Serious: Yes (Life-Threatening, Hospitalization)
  Sender: FDA-Public Use
  Company Number: JP-JNJFOC-20161204431

PATIENT
  Age: 85 Year
  Sex: Female

DRUGS (8)
  1. EPADEL [Concomitant]
     Active Substance: ICOSAPENT
     Route: 048
     Dates: start: 20111011, end: 20161112
  2. VERAPAMIL HYDROCHLORIDE. [Concomitant]
     Active Substance: VERAPAMIL HYDROCHLORIDE
     Route: 048
     Dates: start: 20110118, end: 20161112
  3. METHYCOBAL [Concomitant]
     Active Substance: METHYLCOBALAMIN
     Route: 048
     Dates: start: 20140805, end: 20161112
  4. XARELTO [Suspect]
     Active Substance: RIVAROXABAN
     Indication: ATRIAL FIBRILLATION
     Route: 048
     Dates: start: 20160927, end: 20161112
  5. DIART [Concomitant]
     Active Substance: AZOSEMIDE
     Route: 048
     Dates: start: 20160216
  6. BISOPROLOL [Concomitant]
     Active Substance: BISOPROLOL
     Route: 062
     Dates: start: 20111011, end: 20161112
  7. POLAPREZINC [Concomitant]
     Active Substance: POLAPREZINC
     Route: 048
     Dates: start: 20130625, end: 20161112
  8. BAYASPIRIN [Suspect]
     Active Substance: ASPIRIN
     Indication: PRODUCT USED FOR UNKNOWN INDICATION
     Route: 048

REACTIONS (1)
  - Acute myocardial infarction [Recovering/Resolving]

NARRATIVE: CASE EVENT DATE: 20161112
